FAERS Safety Report 8511428-2 (Version None)
Quarter: 2012Q3

REPORT INFORMATION
  Report Type: 
  Country: None (occurrence: None)
  Receive Date: 20120716
  Receipt Date: 20120710
  Transmission Date: 20120928
  Serious: Yes (Hospitalization)
  Sender: FDA-Public Use
  Company Number: US-BAYER-2010-002282

PATIENT
  Age: 19 Year
  Sex: Female
  Weight: 99.773 kg

DRUGS (8)
  1. IRON [Concomitant]
     Indication: ANAEMIA
     Dosage: DAILY DOSE 150 MG
     Route: 048
  2. PHENTERMINE [Concomitant]
     Indication: WEIGHT LOSS DIET
     Dosage: DAILY DOSE 37.5 MG
     Route: 048
     Dates: start: 20090607
  3. ACETAMINOPHEN [Concomitant]
     Dosage: UNK UNK, PRN
  4. YAZ [Suspect]
     Dosage: UNK
     Dates: start: 20081003, end: 20090607
  5. YASMIN [Suspect]
     Indication: PREMENSTRUAL SYNDROME
     Dosage: UNK
     Dates: start: 20080901, end: 20090701
  6. YAZ [Suspect]
     Indication: PREMENSTRUAL SYNDROME
     Dosage: UNK
     Dates: start: 20080901, end: 20090701
  7. MIDRIN [Concomitant]
     Dosage: 65-100-325 MG
     Route: 048
  8. FERREX [Concomitant]
     Indication: ANAEMIA
     Route: 048

REACTIONS (4)
  - GALLBLADDER DISORDER [None]
  - PULMONARY EMBOLISM [None]
  - DEEP VEIN THROMBOSIS [None]
  - THROMBOSIS [None]
